FAERS Safety Report 19571988 (Version 3)
Quarter: 2021Q4

REPORT INFORMATION
  Report Type: Spontaneous
  Country: US (occurrence: US)
  Receive Date: 20210716
  Receipt Date: 20211001
  Transmission Date: 20220303
  Serious: Yes (Other)
  Sender: FDA-Public Use
  Company Number: US-PFIZER INC-2021276769

PATIENT
  Age: 36 Year
  Sex: Female
  Weight: 157.4 kg

DRUGS (3)
  1. DILANTIN [Suspect]
     Active Substance: PHENYTOIN
     Indication: Seizure
     Dosage: 100 MG, THREE TIMES A DAY
     Route: 048
     Dates: start: 1995
  2. DILANTIN [Suspect]
     Active Substance: PHENYTOIN
     Indication: Epilepsy
     Dosage: 300 MG, 2X/DAY(100 MG X3, TWICE DAILY)
     Dates: start: 20070923, end: 20150921
  3. DILANTIN [Suspect]
     Active Substance: PHENYTOIN
     Indication: Ventriculo-peritoneal shunt

REACTIONS (18)
  - Tooth fracture [Not Recovered/Not Resolved]
  - Dental caries [Not Recovered/Not Resolved]
  - Gingival recession [Not Recovered/Not Resolved]
  - Gingival injury [Not Recovered/Not Resolved]
  - Gingival bleeding [Not Recovered/Not Resolved]
  - Tooth injury [Not Recovered/Not Resolved]
  - Tooth loss [Not Recovered/Not Resolved]
  - Swelling [Not Recovered/Not Resolved]
  - Oral pain [Not Recovered/Not Resolved]
  - Oral discomfort [Not Recovered/Not Resolved]
  - Self esteem decreased [Unknown]
  - Stress [Unknown]
  - Anxiety [Unknown]
  - Pain [Unknown]
  - Ageusia [Unknown]
  - Taste disorder [Unknown]
  - Blister [Unknown]
  - Breath odour [Unknown]

NARRATIVE: CASE EVENT DATE: 20110101
